FAERS Safety Report 14490191 (Version 3)
Quarter: 2018Q1

REPORT INFORMATION
  Report Type: Report from Study
  Country: US (occurrence: US)
  Receive Date: 20180206
  Receipt Date: 20180327
  Transmission Date: 20180509
  Serious: Yes (Hospitalization)
  Sender: FDA-Public Use
  Company Number: US-ROCHE-2048579

PATIENT
  Age: 47 Year
  Sex: Female
  Weight: 87.1 kg

DRUGS (16)
  1. BENADRYL [Concomitant]
     Active Substance: DIPHENHYDRAMINE HYDROCHLORIDE
     Dosage: 16/APR/2012 (WEEK 1), 30/APR/2012 (WEEK 2), 03/OCT/2012 (WEEK 24), 20/MAR/2018 (OLE-WEEK 192)
     Route: 065
  2. VENLAFAXINE ER [Concomitant]
     Active Substance: VENLAFAXINE HYDROCHLORIDE
     Route: 065
     Dates: start: 20150907
  3. OCRELIZUMAB. [Suspect]
     Active Substance: OCRELIZUMAB
     Dosage: 10/OCT/2014 (OLE-WEEK 24), 20/MAR/2015 (OLE-WEEK 48), 16/SEP/2015 (OLE-WEEK 72), 23/MAR/2016 (OLE-WE
     Route: 042
     Dates: start: 20141010
  4. ACETAMINOPHEN. [Concomitant]
     Active Substance: ACETAMINOPHEN
     Route: 065
     Dates: start: 20171219, end: 20171219
  5. OCRELIZUMAB. [Suspect]
     Active Substance: OCRELIZUMAB
     Indication: RELAPSING-REMITTING MULTIPLE SCLEROSIS
     Dosage: 16/APR/2012 (WEEK 1), 30/APR/2012 (WEEK 2)?(ADMINISTERED ON DAYS 1 AND 15 OF CYCLE 1, FOLLOWED BY DA
     Route: 042
     Dates: start: 20120416, end: 20120416
  6. BENADRYL [Concomitant]
     Active Substance: DIPHENHYDRAMINE HYDROCHLORIDE
     Dosage: 29/MAR/2013 (WEEK 48), 06/SEP/2013 (WEEK 72), 14/APR/2014 (OLE-WEEK 0), 28/APR/2014 (OLE-WEEK 2), 10
     Route: 065
  7. CLONAZEPAM. [Concomitant]
     Active Substance: CLONAZEPAM
     Route: 065
     Dates: start: 20111215
  8. OCRELIZUMAB. [Suspect]
     Active Substance: OCRELIZUMAB
     Dosage: 03/OCT/2012 (WEEK 24), 29/MAR/2013 (WEEK 48), 06/SEP/2013 (WEEK 72)
     Route: 042
     Dates: start: 20121003, end: 20121003
  9. METHYLPREDNISOLONE. [Concomitant]
     Active Substance: METHYLPREDNISOLONE
     Dosage: 16/APR/2012 (WEEK 1), 30/APR/2012 (WEEK 2),  03/OCT/2012 (WEEK 24), 29/MAR/2013 (WEEK 48), 06/SEP/20
     Route: 065
  10. TOPAMAX [Concomitant]
     Active Substance: TOPIRAMATE
     Route: 065
     Dates: start: 20111215, end: 20120315
  11. TOPAMAX [Concomitant]
     Active Substance: TOPIRAMATE
     Route: 065
     Dates: start: 20140319, end: 20150915
  12. ACETAMINOPHEN. [Concomitant]
     Active Substance: ACETAMINOPHEN
     Dosage: 30/APR/2012 (WEEK 2), 22/SEP/2016 (OLE-WEEK 120), 17/JUL/2017 (OLE-WEEK 168), 20/MAR/2018 (OLE-WEEK
     Route: 065
  13. OCRELIZUMAB. [Suspect]
     Active Substance: OCRELIZUMAB
     Indication: RELAPSING-REMITTING MULTIPLE SCLEROSIS
     Dosage: 14/APR/2014 (OLE- WEEK 0), 28/APR/2014 (OLE-WEEK 2)?(ADMINISTERED AS 300 MG (260 ML) ON DAY 1 OF CYC
     Route: 042
     Dates: start: 20140414, end: 20140414
  14. TYLENOL [Concomitant]
     Active Substance: ACETAMINOPHEN
     Dosage: 16/APR/2012 (WEEK 1),  03/OCT/2012 (WEEK 24), 29/MAR/2013 (WEEK 48), 06/SEP/2013 (WEEK 72), 14/APR/2
     Route: 065
  15. VITAMIN D3 [Concomitant]
     Active Substance: CHOLECALCIFEROL
     Route: 065
     Dates: start: 20101222
  16. PLACEBO [Suspect]
     Active Substance: UNSPECIFIED INGREDIENT
     Indication: RELAPSING-REMITTING MULTIPLE SCLEROSIS
     Dosage: FURTHER DOSE RECEIVED ON 21/MAR/2014 AND MOST RECENT DOSE RECEIVED ON 11/APR/2014
     Route: 058
     Dates: start: 20120416

REACTIONS (1)
  - Pyelonephritis [Recovered/Resolved]

NARRATIVE: CASE EVENT DATE: 20171219
